FAERS Safety Report 14988448 (Version 1)
Quarter: 2018Q2

REPORT INFORMATION
  Report Type: Spontaneous
  Country: US (occurrence: US)
  Receive Date: 20180608
  Receipt Date: 20180608
  Transmission Date: 20180711
  Serious: No
  Sender: FDA-Public Use
  Company Number: US-SA-2018SA151280

PATIENT
  Age: 33 Year
  Sex: Female

DRUGS (2)
  1. MYCOPHENOLATE [Concomitant]
     Active Substance: MYCOPHENOLIC ACID
  2. DUPIXENT [Suspect]
     Active Substance: DUPILUMAB
     Indication: RHINITIS ALLERGIC
     Dosage: 300 MG, QOW
     Route: 058
     Dates: start: 20171114

REACTIONS (1)
  - Acne [Unknown]

NARRATIVE: CASE EVENT DATE: 20180522
